FAERS Safety Report 13995225 (Version 1)
Quarter: 2017Q3

REPORT INFORMATION
  Report Type: Spontaneous
  Country: US (occurrence: US)
  Receive Date: 20170921
  Receipt Date: 20170921
  Transmission Date: 20171128
  Serious: No
  Sender: FDA-Public Use
  Company Number: US-LUPIN PHARMACEUTICALS INC.-E2B_00007495

PATIENT
  Sex: Male

DRUGS (2)
  1. CEFUROXIME AXETIL TABLETS USP, 500 MG [Suspect]
     Active Substance: CEFUROXIME AXETIL
     Indication: PROPHYLAXIS
     Dosage: 500 MG,BID,
     Route: 048
     Dates: start: 20170113, end: 20170118
  2. CEFUROXIME AXETIL TABLETS USP, 500 MG [Suspect]
     Active Substance: CEFUROXIME AXETIL
     Dosage: 500 MG,BID,
     Route: 048

REACTIONS (2)
  - Oral pain [Recovered/Resolved]
  - Oral discomfort [Recovered/Resolved]
